FAERS Safety Report 16776096 (Version 1)
Quarter: 2019Q3

REPORT INFORMATION
  Report Type: Spontaneous
  Country: CA (occurrence: CA)
  Receive Date: 20190905
  Receipt Date: 20190905
  Transmission Date: 20191005
  Serious: Yes (Hospitalization, Other)
  Sender: FDA-Public Use
  Company Number: CA-PFIZER INC-2019381680

PATIENT
  Age: 65 Year
  Sex: Male

DRUGS (4)
  1. CELECOXIB. [Suspect]
     Active Substance: CELECOXIB
     Dosage: 100 MG, 2X/DAY
     Route: 065
  2. BISOPROLOL [Suspect]
     Active Substance: BISOPROLOL
     Dosage: 5 MG, 1X/DAY
     Route: 065
  3. PRADAXA [Suspect]
     Active Substance: DABIGATRAN ETEXILATE MESYLATE
     Indication: ARRHYTHMIA
     Dosage: 150 MG, 2X/DAY
     Route: 065
  4. PRADAXA [Suspect]
     Active Substance: DABIGATRAN ETEXILATE MESYLATE
     Indication: ANTICOAGULANT THERAPY

REACTIONS (7)
  - Limb discomfort [Recovered/Resolved]
  - Wolff-Parkinson-White syndrome [Recovered/Resolved]
  - Fall [Recovered/Resolved]
  - Nervousness [Recovered/Resolved]
  - Cardiac disorder [Recovered/Resolved]
  - Hypotension [Recovered/Resolved]
  - Musculoskeletal disorder [Recovered/Resolved]
